FAERS Safety Report 13420538 (Version 1)
Quarter: 2017Q2

REPORT INFORMATION
  Report Type: Report from Study
  Country: BR (occurrence: BR)
  Receive Date: 20170408
  Receipt Date: 20170408
  Transmission Date: 20170830
  Serious: Yes (Other)
  Sender: FDA-Public Use
  Company Number: BR-AMGEN-BRASL2017051251

PATIENT
  Age: 90 Year
  Sex: Female

DRUGS (4)
  1. REPATHA [Suspect]
     Active Substance: EVOLOCUMAB
     Indication: PRODUCT USED FOR UNKNOWN INDICATION
     Dosage: 140 MG, Q2WK
     Route: 065
  2. ISOSORBIDE MONONITRATE. [Concomitant]
     Active Substance: ISOSORBIDE MONONITRATE
  3. TRIMETAZIDINE [Concomitant]
     Active Substance: TRIMETAZIDINE
  4. NEBIVOLOL HYDROCHLORIDE W/VALSARTAN [Concomitant]

REACTIONS (1)
  - Pneumonia [Recovering/Resolving]
